FAERS Safety Report 8106944-1 (Version None)
Quarter: 2011Q4

REPORT INFORMATION
  Report Type: 
  Country: None (occurrence: None)
  Receive Date: 20111223
  Receipt Date: 20110401
  Transmission Date: 20120403
  Serious: Yes (Other)
  Sender: FDA-Public Use
  Company Number: PHHY2011US27590

PATIENT
  Age: 63 Year
  Sex: Male

DRUGS (4)
  1. FLEXERIL [Concomitant]
  2. IBUPROFEN [Concomitant]
  3. XANAX [Concomitant]
  4. METHYLPHANIDATE HYDROCHLORIDE [Suspect]
     Dosage: 10 MG

REACTIONS (3)
  - LETHARGY [None]
  - WRONG TECHNIQUE IN DRUG USAGE PROCESS [None]
  - DEPRESSION [None]
